FAERS Safety Report 10724517 (Version 1)
Quarter: 2015Q1

REPORT INFORMATION
  Report Type: Spontaneous
  Country: FR (occurrence: FR)
  Receive Date: 20150120
  Receipt Date: 20150120
  Transmission Date: 20150721
  Serious: Yes (Other)
  Sender: FDA-Public Use
  Company Number: FR-ELI_LILLY_AND_COMPANY-FR201501002448

PATIENT
  Age: 42 Year
  Sex: Female

DRUGS (6)
  1. CISPLATIN. [Suspect]
     Active Substance: CISPLATIN
     Dosage: 120 MG, UNK
     Route: 042
     Dates: start: 20140806, end: 20140925
  2. AVASTIN [Suspect]
     Active Substance: BEVACIZUMAB
     Dosage: 420 MG, UNK
     Route: 042
     Dates: start: 20140806, end: 20140827
  3. ALIMTA [Suspect]
     Active Substance: PEMETREXED DISODIUM
     Indication: LUNG NEOPLASM MALIGNANT
     Dosage: 500 MG, UNK
     Route: 042
     Dates: start: 20140716
  4. ALIMTA [Suspect]
     Active Substance: PEMETREXED DISODIUM
     Dosage: 840 MG, UNK
     Route: 042
     Dates: start: 20140806, end: 20140925
  5. CISPLATIN. [Suspect]
     Active Substance: CISPLATIN
     Indication: LUNG NEOPLASM MALIGNANT
     Dosage: UNK MG, UNK
     Route: 042
     Dates: start: 20140716
  6. AVASTIN [Suspect]
     Active Substance: BEVACIZUMAB
     Indication: LUNG NEOPLASM MALIGNANT
     Dosage: UNK
     Route: 042
     Dates: start: 20140716

REACTIONS (3)
  - Intraocular pressure increased [Recovered/Resolved]
  - Off label use [Unknown]
  - Herpes ophthalmic [Unknown]

NARRATIVE: CASE EVENT DATE: 20140908
